FAERS Safety Report 6385607-7 (Version None)
Quarter: 2009Q4

REPORT INFORMATION
  Report Type: 
  Country: None (occurrence: None)
  Receive Date: 20091002
  Receipt Date: 20081014
  Transmission Date: 20100525
  Serious: Yes (Hospitalization)
  Sender: FDA-Public Use
  Company Number: US-ASTRAZENECA-2008UW22737

PATIENT
  Sex: Female

DRUGS (4)
  1. ARIMIDEX [Suspect]
     Route: 048
     Dates: start: 20060101
  2. NORCO [Concomitant]
     Route: 048
  3. MIRAPEX [Concomitant]
     Route: 048
  4. COLACE [Concomitant]
     Route: 048

REACTIONS (2)
  - ARTHRITIS [None]
  - TRIGGER FINGER [None]
